FAERS Safety Report 6859139-3 (Version None)
Quarter: 2010Q3

REPORT INFORMATION
  Report Type: 
  Country: None (occurrence: None)
  Receive Date: 20100719
  Receipt Date: 20080222
  Transmission Date: 20110219
  Serious: Yes (Other)
  Sender: FDA-Public Use
  Company Number: US-PFIZER INC-2008018167

PATIENT
  Sex: Female
  Weight: 54.4 kg

DRUGS (4)
  1. CHANTIX [Suspect]
     Indication: SMOKING CESSATION THERAPY
     Dates: start: 20080218
  2. ANTIBIOTICS [Concomitant]
  3. CYMBALTA [Concomitant]
  4. LIPITOR [Concomitant]

REACTIONS (3)
  - CONSTIPATION [None]
  - DYSPEPSIA [None]
  - MUSCULOSKELETAL DISCOMFORT [None]
